FAERS Safety Report 4654605-3 (Version None)
Quarter: 2005Q2

REPORT INFORMATION
  Report Type: 
  Country: None (occurrence: None)
  Receive Date: 20050506
  Receipt Date: 20050318
  Transmission Date: 20051028
  Serious: Yes (Hospitalization, Other)
  Sender: FDA-Public Use
  Company Number: US-MERCK-0503USA03442

PATIENT
  Age: 44 Year
  Sex: Female
  Weight: 87 kg

DRUGS (13)
  1. ZOCOR [Suspect]
     Indication: HYPERLIPIDAEMIA
     Route: 048
     Dates: start: 20050201, end: 20050318
  2. ZOCOR [Suspect]
     Route: 048
     Dates: start: 20000101, end: 20020801
  3. ZOCOR [Suspect]
     Route: 048
     Dates: start: 20020801, end: 20040601
  4. ZOCOR [Suspect]
     Route: 048
     Dates: start: 20040601, end: 20050201
  5. LOPID [Concomitant]
     Indication: HYPERLIPIDAEMIA
     Route: 048
     Dates: start: 20021101, end: 20050318
  6. ACTONEL [Concomitant]
     Indication: OSTEOPOROSIS
     Route: 048
     Dates: start: 20030501
  7. TOPROL-XL [Concomitant]
     Indication: HYPERTENSION
     Route: 048
     Dates: start: 20020801
  8. KETOCONAZOLE [Concomitant]
     Indication: RENAL DISORDER
     Route: 048
     Dates: start: 20010401
  9. PROGRAF [Concomitant]
     Indication: RENAL TRANSPLANT
     Route: 048
     Dates: start: 19990101
  10. CELLCEPT [Concomitant]
     Indication: RENAL DISORDER
     Route: 048
     Dates: start: 19990101
  11. ASPIRIN [Concomitant]
     Indication: CEREBROVASCULAR ACCIDENT
     Route: 048
     Dates: start: 20050301
  12. PREVACID [Concomitant]
     Indication: GASTROOESOPHAGEAL REFLUX DISEASE
     Route: 048
     Dates: start: 20050101
  13. PLAVIX [Concomitant]
     Indication: CEREBROVASCULAR ACCIDENT
     Route: 048
     Dates: start: 20050301

REACTIONS (6)
  - ALANINE AMINOTRANSFERASE INCREASED [None]
  - ASPARTATE AMINOTRANSFERASE INCREASED [None]
  - BLOOD CREATINE PHOSPHOKINASE INCREASED [None]
  - BLOOD CREATININE INCREASED [None]
  - CEREBROVASCULAR ACCIDENT [None]
  - MYALGIA [None]
